FAERS Safety Report 5603492-5 (Version None)
Quarter: 2008Q1

REPORT INFORMATION
  Report Type: 
  Country: None (occurrence: None)
  Receive Date: 20080122
  Receipt Date: 20080111
  Transmission Date: 20080703
  Serious: Yes (Other)
  Sender: FDA-Public Use
  Company Number: 2007BI026966

PATIENT
  Age: 55 Year
  Sex: Female

DRUGS (1)
  1. TYSABRI [Suspect]
     Indication: MULTIPLE SCLEROSIS
     Dosage: 300 MG; QM; IV
     Route: 042
     Dates: start: 20061227

REACTIONS (3)
  - GENERAL PHYSICAL HEALTH DETERIORATION [None]
  - METASTASES TO LIVER [None]
  - PANCREATIC NEUROENDOCRINE TUMOUR [None]
